FAERS Safety Report 20449612 (Version 1)
Quarter: 2022Q1

REPORT INFORMATION
  Report Type: Spontaneous
  Country: US (occurrence: US)
  Receive Date: 20220209
  Receipt Date: 20220209
  Transmission Date: 20220424
  Serious: Yes (Hospitalization, Other)
  Sender: FDA-Public Use
  Company Number: US-BoehringerIngelheim-2022-BI-151728

PATIENT
  Age: 59 Year
  Sex: Female
  Weight: 108 kg

DRUGS (5)
  1. JARDIANCE [Suspect]
     Active Substance: EMPAGLIFLOZIN
     Indication: Product used for unknown indication
  2. KORLYM [Suspect]
     Active Substance: MIFEPRISTONE
     Indication: Cushing^s syndrome
     Route: 048
     Dates: start: 20190809, end: 20191001
  3. KORLYM [Suspect]
     Active Substance: MIFEPRISTONE
     Route: 048
     Dates: start: 20191002, end: 20191126
  4. KORLYM [Suspect]
     Active Substance: MIFEPRISTONE
     Route: 048
     Dates: start: 20191127
  5. KORLYM [Suspect]
     Active Substance: MIFEPRISTONE
     Route: 048

REACTIONS (6)
  - Cellulitis [Unknown]
  - Fungal infection [Unknown]
  - Urinary tract infection [Unknown]
  - Cortisol increased [Unknown]
  - Myocardial infarction [Unknown]
  - Body mass index increased [Not Recovered/Not Resolved]

NARRATIVE: CASE EVENT DATE: 20210101
